FAERS Safety Report 18117890 (Version 1)
Quarter: 2020Q3

REPORT INFORMATION
  Report Type: Spontaneous
  Country: US (occurrence: US)
  Receive Date: 20200806
  Receipt Date: 20200806
  Transmission Date: 20201103
  Serious: Yes (Death, Life-Threatening, Other)
  Sender: FDA-Public Use
  Company Number: US-HIKMA PHARMACEUTICALS USA INC.-US-H14001-20-03693

PATIENT
  Age: 31 Year
  Sex: Male

DRUGS (5)
  1. COBICISTAT [Concomitant]
     Active Substance: COBICISTAT
     Indication: HIV TEST POSITIVE
     Dosage: UNKNOWN
     Route: 065
  2. PREDNISONE. [Suspect]
     Active Substance: PREDNISONE
     Indication: EYE PAIN
     Route: 048
  3. ELVITEGRAVIR [Concomitant]
     Active Substance: ELVITEGRAVIR
     Indication: HIV TEST POSITIVE
     Dosage: UNKNOWN
     Route: 065
  4. EMTRICITABINE [Concomitant]
     Active Substance: EMTRICITABINE
     Indication: HIV TEST POSITIVE
     Dosage: UNKNOWN
     Route: 065
  5. TENOFOVIR [Concomitant]
     Active Substance: TENOFOVIR
     Indication: HIV TEST POSITIVE
     Dosage: UNKNOWN
     Route: 065

REACTIONS (4)
  - Pyelonephritis [Fatal]
  - Ileal perforation [Not Recovered/Not Resolved]
  - Enteritis [Not Recovered/Not Resolved]
  - Peritonitis [Fatal]
